FAERS Safety Report 22014885 (Version 3)
Quarter: 2023Q1

REPORT INFORMATION
  Report Type: Report from Study
  Country: CA (occurrence: None)
  Receive Date: 20230221
  Receipt Date: 20230329
  Transmission Date: 20230417
  Serious: Yes (Other)
  Sender: FDA-Public Use
  Company Number: CA-Merck Healthcare KGaA-9383626

PATIENT
  Sex: Female

DRUGS (1)
  1. SAIZEN [Suspect]
     Active Substance: SOMATROPIN
     Indication: Product used for unknown indication
     Route: 058
     Dates: start: 20230120

REACTIONS (5)
  - Haematochezia [Unknown]
  - Rectal injury [Unknown]
  - Constipation [Unknown]
  - Flank pain [Recovered/Resolved]
  - Injection site haemorrhage [Recovered/Resolved]
